FAERS Safety Report 16240083 (Version 1)
Quarter: 2019Q2

REPORT INFORMATION
  Report Type: Spontaneous
  Country: US (occurrence: US)
  Receive Date: 20190425
  Receipt Date: 20190425
  Transmission Date: 20190711
  Serious: No
  Sender: FDA-Public Use
  Company Number: US-ALLERGAN-1846446US

PATIENT
  Age: 8 Year
  Sex: Female

DRUGS (1)
  1. TRIPTORELIN PAMOATE - BP [Suspect]
     Active Substance: TRIPTORELIN PAMOATE
     Indication: PRODUCT USED FOR UNKNOWN INDICATION
     Dosage: 22.5 MG, SINGLE
     Route: 030
     Dates: start: 20180824, end: 20180824

REACTIONS (6)
  - Wrong technique in device usage process [Unknown]
  - Product use complaint [Unknown]
  - Product physical issue [Unknown]
  - Product preparation error [Unknown]
  - Product deposit [Unknown]
  - Underdose [Unknown]
